FAERS Safety Report 8951419 (Version 1)
Quarter: 2012Q4

REPORT INFORMATION
  Report Type: 
  Country: FR (occurrence: FR)
  Receive Date: 20121207
  Receipt Date: 20121207
  Transmission Date: 20130627
  Serious: Yes (Life-Threatening, Hospitalization)
  Sender: FDA-Public Use
  Company Number: FR-JNJFOC-20121114285

PATIENT
  Age: 0 Year
  Sex: Female
  Weight: 4 kg

DRUGS (3)
  1. HALDOL [Suspect]
     Indication: FOETAL EXPOSURE DURING PREGNANCY
     Route: 064
  2. TERCIAN [Suspect]
     Indication: FOETAL EXPOSURE DURING PREGNANCY
     Route: 065
  3. XANAX [Suspect]
     Indication: FOETAL EXPOSURE DURING PREGNANCY
     Route: 065

REACTIONS (2)
  - Hypotonia neonatal [Recovered/Resolved]
  - Cardio-respiratory arrest neonatal [Recovered/Resolved]
